FAERS Safety Report 7586019-0 (Version None)
Quarter: 2011Q3

REPORT INFORMATION
  Report Type: 
  Country: None (occurrence: None)
  Receive Date: 20110701
  Receipt Date: 20110628
  Transmission Date: 20111222
  Serious: Yes (Other)
  Sender: FDA-Public Use
  Company Number: JP-BRACCO-004968

PATIENT
  Sex: Female

DRUGS (2)
  1. IOPAMIDOL [Suspect]
     Indication: BILE DUCT CANCER
     Dosage: INFUSION RATE: 3ML/S
     Route: 042
     Dates: start: 20110621, end: 20110621
  2. IOPAMIDOL [Suspect]
     Indication: COMPUTERISED TOMOGRAM
     Dosage: INFUSION RATE: 3ML/S
     Route: 042
     Dates: start: 20110621, end: 20110621

REACTIONS (5)
  - DYSPNOEA [None]
  - BLOOD PRESSURE DECREASED [None]
  - OXYGEN SATURATION DECREASED [None]
  - FEELING ABNORMAL [None]
  - VOMITING [None]
